FAERS Safety Report 6824616-8 (Version None)
Quarter: 2010Q3

REPORT INFORMATION
  Report Type: 
  Country: None (occurrence: None)
  Receive Date: 20100708
  Receipt Date: 20061107
  Transmission Date: 20110219
  Serious: No
  Sender: FDA-Public Use
  Company Number: US-PFIZER INC-2006138949

PATIENT
  Sex: Female
  Weight: 83.46 kg

DRUGS (3)
  1. CHANTIX [Suspect]
     Indication: EX-TOBACCO USER
     Dates: start: 20061001, end: 20061106
  2. LEXAPRO [Concomitant]
  3. OTHER HYPNOTICS AND SEDATIVES [Concomitant]

REACTIONS (4)
  - ASTHENIA [None]
  - CONSTIPATION [None]
  - FATIGUE [None]
  - HEADACHE [None]
